FAERS Safety Report 4619983-X (Version None)
Quarter: 2005Q1

REPORT INFORMATION
  Report Type: 
  Country: None (occurrence: None)
  Receive Date: 20050323
  Receipt Date: 20050323
  Transmission Date: 20050727
  Serious: Yes (Other)
  Sender: FDA-Public Use
  Company Number: None

PATIENT
  Sex: Male

DRUGS (3)
  1. CARBAMAZEPINE [Suspect]
     Indication: CONVULSION
     Dosage: 200MG  2 - 1 1/2 - 1 1/2   PREVIOUSLY ON TEGRETOL
  2. CARBAMAZEPINE [Suspect]
     Indication: PROFOUND MENTAL RETARDATION
     Dosage: 200MG  2 - 1 1/2 - 1 1/2   PREVIOUSLY ON TEGRETOL
  3. BACLOFEN [Concomitant]

REACTIONS (5)
  - DRUG INEFFECTIVE [None]
  - DYSKINESIA [None]
  - GRIP STRENGTH DECREASED [None]
  - MUSCLE SPASTICITY [None]
  - PHARMACEUTICAL PRODUCT COMPLAINT [None]
